FAERS Safety Report 19640238 (Version 1)
Quarter: 2021Q3

REPORT INFORMATION
  Report Type: Spontaneous
  Country: GB (occurrence: GB)
  Receive Date: 20210730
  Receipt Date: 20210730
  Transmission Date: 20211014
  Serious: Yes (Other)
  Sender: FDA-Public Use
  Company Number: GB-MYLANLABS-2021M1045606

PATIENT
  Age: 80 Year
  Sex: Female
  Weight: 95 kg

DRUGS (12)
  1. CANDESARTAN. [Concomitant]
     Active Substance: CANDESARTAN
     Dosage: 1 DOSAGE FORM, QD
     Dates: start: 20150227
  2. DERMOL                             /00337102/ [Concomitant]
     Active Substance: CLOBETASOL PROPIONATE
     Dosage: USE AS SOAP SUBSTITUTE ? ANTIMICROBIAL LOTION
     Dates: start: 20210707
  3. SYMBICORT [Concomitant]
     Active Substance: BUDESONIDE\FORMOTEROL FUMARATE DIHYDRATE
     Dosage: 2 DOSAGE FORM, BID
     Route: 055
     Dates: start: 20200227
  4. ATORVASTATIN [Concomitant]
     Active Substance: ATORVASTATIN
     Dosage: 1 DOSAGE FORM, QD
     Dates: start: 20170623
  5. NITROFURANTOIN. [Suspect]
     Active Substance: NITROFURANTOIN
     Indication: PRODUCT USED FOR UNKNOWN INDICATION
     Dosage: 100 MILLIGRAM, BID
     Dates: start: 20210630
  6. VENTOLIN [Concomitant]
     Active Substance: ALBUTEROL SULFATE
     Dosage: 2 DOSAGE FORM, PRN
     Route: 055
     Dates: start: 20140519
  7. CETIRIZINE [Concomitant]
     Active Substance: CETIRIZINE HYDROCHLORIDE
     Dosage: 1 DOSAGE FORM, QD
     Dates: start: 20210707
  8. FUROSEMIDE. [Concomitant]
     Active Substance: FUROSEMIDE
     Dosage: EACH MORNING
     Dates: start: 20210630
  9. LANSOPRAZOLE. [Concomitant]
     Active Substance: LANSOPRAZOLE
     Dosage: 1 DOSAGE FORM, QD
     Dates: start: 20190902
  10. BISOPROLOL [Concomitant]
     Active Substance: BISOPROLOL
     Dosage: 1 DOSAGE FORM, QD
     Dates: start: 20200430
  11. CO?DYDRAMOL [Concomitant]
     Active Substance: ACETAMINOPHEN\DIHYDROCODEINE
     Dosage: TAKE 1 OR 2
     Dates: start: 20190902
  12. DOXAZOSIN [Concomitant]
     Active Substance: DOXAZOSIN MESYLATE
     Dosage: 1 DOSAGE FORM, QD
     Dates: start: 20190422

REACTIONS (2)
  - Nausea [Recovered/Resolved]
  - Rash [Unknown]

NARRATIVE: CASE EVENT DATE: 20210707
